FAERS Safety Report 8790284 (Version 5)
Quarter: 2013Q4

REPORT INFORMATION
  Report Type: Spontaneous
  Country: US (occurrence: US)
  Receive Date: 20120917
  Receipt Date: 20131016
  Transmission Date: 20140711
  Serious: Yes (Hospitalization, Other)
  Sender: FDA-Public Use
  Company Number: US-BAYER-2012-096041

PATIENT
  Age: 33 Year
  Sex: Female
  Weight: 57 kg

DRUGS (10)
  1. ATIVAN [Concomitant]
  2. YAZ [Suspect]
     Indication: ACNE
     Dosage: UNK
     Dates: start: 20050524, end: 20111114
  3. YASMIN [Suspect]
     Indication: ACNE
     Dosage: UNK
     Dates: start: 20050524, end: 20111114
  4. OCELLA [Suspect]
     Indication: ACNE
     Dosage: UNK
     Dates: start: 20050524, end: 20111114
  5. CARVEDILOL [Concomitant]
     Dosage: 12.5 MG TABLET
     Dates: start: 20120208
  6. COREG [Concomitant]
     Indication: HYPERTENSION
     Dosage: 12.5 MG, QD
  7. COLECALCIFEROL [Concomitant]
     Dosage: 5000 UNITS WEEKLY
  8. BENADRYL [Concomitant]
     Dosage: AS NEEDED
  9. CARDIZEM [Concomitant]
  10. LYRICA [Concomitant]

REACTIONS (5)
  - Cerebrovascular accident [None]
  - Deep vein thrombosis [None]
  - Injury [None]
  - Pain [None]
  - Pain [None]
